FAERS Safety Report 10213748 (Version 1)
Quarter: 2014Q2

REPORT INFORMATION
  Report Type: Spontaneous
  Country: US (occurrence: None)
  Receive Date: 20140529
  Receipt Date: 20140529
  Transmission Date: 20141212
  Serious: Yes (Hospitalization)
  Sender: FDA-Public Use
  Company Number: FK201401967

PATIENT
  Age: 51 Year
  Sex: Female
  Weight: 94.4 kg

DRUGS (13)
  1. OXALIPLATIN [Suspect]
     Indication: COLON CANCER STAGE IV
     Dosage: (NOT OTHERWISE SPECIFIED)
     Route: 042
     Dates: start: 2013, end: 20140513
  2. LEVO-LEUCOVORIN (CALCIUM FOLINATE) [Concomitant]
  3. FLUOROURACIL (FLUOROURACIL) [Concomitant]
  4. PALONOSETRON (PALONOSETRON) [Concomitant]
  5. DEXAMETHASONE (DEXAMETHASONE) [Concomitant]
  6. ACETAMINOPHEN/HYDROCORTISONE (PROCET) [Concomitant]
  7. ACETAMINOPHEN/ASPIRIN/CAFFEINE (THOMAPYRIN N) [Concomitant]
  8. RANITIDINE (RANITIDINE) [Concomitant]
  9. SENNA (SENNA ALEXANDRINA) [Concomitant]
  10. GLIMEPIRIDE (GLIMEPIRIDE) [Concomitant]
  11. PROCHLORPERAZINE (PROCHLORPERAZINE) [Concomitant]
  12. PROMETHAZINE (PROMETHAZINE) [Concomitant]
  13. SIMETHICONE (SIMETICONE) [Concomitant]

REACTIONS (6)
  - Tremor [None]
  - Chills [None]
  - Petechiae [None]
  - Heart rate increased [None]
  - Pyrexia [None]
  - White blood cell count abnormal [None]
